FAERS Safety Report 9705765 (Version 1)
Quarter: 2013Q4

REPORT INFORMATION
  Report Type: Spontaneous
  Country: US (occurrence: US)
  Receive Date: 20131122
  Receipt Date: 20131122
  Transmission Date: 20140711
  Serious: No
  Sender: FDA-Public Use
  Company Number: US-GILEAD-2008-0018010

PATIENT
  Age: 59 Year
  Sex: Female
  Weight: 73.48 kg

DRUGS (10)
  1. LETAIRIS [Suspect]
     Indication: PULMONARY HYPERTENSION
     Route: 048
     Dates: start: 20080414
  2. REVATIO [Concomitant]
     Route: 048
  3. SPIRONOLACT [Concomitant]
     Route: 048
  4. DIGOXIN [Concomitant]
     Route: 048
  5. FUROSEMIDE [Concomitant]
     Route: 048
  6. WARFARIN [Concomitant]
     Route: 048
  7. NEURONTIN [Concomitant]
     Route: 048
  8. MORPHINE SUL [Concomitant]
     Route: 048
  9. CLIMARA [Concomitant]
  10. BETAMETH VAL OIN 0.1% [Concomitant]

REACTIONS (1)
  - Trichorrhexis [Not Recovered/Not Resolved]
